FAERS Safety Report 19327439 (Version 1)
Quarter: 2021Q2

REPORT INFORMATION
  Report Type: Spontaneous
  Country: GR (occurrence: GR)
  Receive Date: 20210528
  Receipt Date: 20210528
  Transmission Date: 20210717
  Serious: Yes (Other)
  Sender: FDA-Public Use
  Company Number: GR-ROCHE-2801588

PATIENT
  Sex: Female

DRUGS (1)
  1. OCREVUS [Suspect]
     Active Substance: OCRELIZUMAB
     Indication: RELAPSING MULTIPLE SCLEROSIS
     Dosage: 300MG AT DAY 0 AND 14 THEN 600 MG EVERY 6 MONTHS?SECOND DOSE ON 26/MAR/2021
     Route: 042

REACTIONS (1)
  - Autoimmune hepatitis [Unknown]
